FAERS Safety Report 25859009 (Version 1)
Quarter: 2025Q3

REPORT INFORMATION
  Report Type: Spontaneous
  Country: US (occurrence: US)
  Receive Date: 20250929
  Receipt Date: 20250929
  Transmission Date: 20251020
  Serious: Yes (Other)
  Sender: IMPRIMIS NJOF, LLC
  Company Number: US-Imprimis NJOF, LLC-2185511

PATIENT

DRUGS (1)
  1. POVIDONE-IODINE\PROPARACAINE HYDROCHLORIDE [Suspect]
     Active Substance: POVIDONE-IODINE\PROPARACAINE HYDROCHLORIDE

REACTIONS (1)
  - Endophthalmitis [Unknown]
